FAERS Safety Report 8465316-0 (Version None)
Quarter: 2012Q2

REPORT INFORMATION
  Report Type: 
  Country: None (occurrence: None)
  Receive Date: 20120626
  Receipt Date: 20120618
  Transmission Date: 20120825
  Serious: Yes (Other)
  Sender: FDA-Public Use
  Company Number: US-BAYER-2012-061279

PATIENT
  Age: 40 Year
  Sex: Female

DRUGS (13)
  1. YAZ [Suspect]
  2. DROSPIRENONE AND ETHINYL ESTRADIOL [Suspect]
  3. ALBUTEROL [Concomitant]
     Dosage: UNK
     Route: 045
     Dates: start: 20110624
  4. IBUPROFEN [Concomitant]
     Dosage: UNK
     Route: 048
     Dates: start: 20110723
  5. METHYLPHENIDAT [Concomitant]
     Dosage: 10 MG, UNK
     Route: 048
     Dates: start: 20110401
  6. PROAIR HFA [Concomitant]
     Dosage: UNK
     Route: 045
     Dates: start: 20110614
  7. BENETROPINE [Concomitant]
     Dosage: 0.5 MG, UNK
     Route: 048
     Dates: start: 20110701
  8. VENLAFAXINE HCL [Concomitant]
     Dosage: 75 MG, UNK
     Route: 048
     Dates: start: 20110506
  9. CLARITIN [Concomitant]
     Dosage: UNK
     Route: 048
     Dates: start: 20110520
  10. NAPHCON-A [BENZALKONIUM CHLORIDE,NAPHAZOLINE HYDROCHLORIDE,PHENIRA [Concomitant]
     Dosage: UNK
     Route: 047
     Dates: start: 20110520
  11. RISPERDAL [Concomitant]
     Dosage: UNK
     Route: 048
     Dates: start: 20110723
  12. YASMIN [Suspect]
  13. PROVENTIL [Concomitant]
     Dosage: UNK
     Route: 045
     Dates: start: 20110702

REACTIONS (1)
  - DEEP VEIN THROMBOSIS [None]
